FAERS Safety Report 26187363 (Version 2)
Quarter: 2025Q4

REPORT INFORMATION
  Report Type: Report from Study
  Country: MX (occurrence: MX)
  Receive Date: 20251222
  Receipt Date: 20251223
  Transmission Date: 20260118
  Serious: Yes (Hospitalization)
  Sender: NOVARTIS
  Company Number: MX-002147023-NVSC2025MX193145

PATIENT
  Age: 60 Year
  Sex: Female
  Weight: 68 kg

DRUGS (1)
  1. EXFORGE [Suspect]
     Active Substance: AMLODIPINE BESYLATE\VALSARTAN
     Indication: Hypertension
     Dosage: 160/5 MG, QD
     Route: 048
     Dates: start: 20241203

REACTIONS (4)
  - Diarrhoea [Recovered/Resolved]
  - Abdominal pain upper [Recovered/Resolved]
  - Blood pressure diastolic decreased [Unknown]
  - Visual impairment [Unknown]

NARRATIVE: CASE EVENT DATE: 20250601
